FAERS Safety Report 4954140-9 (Version None)
Quarter: 2006Q1

REPORT INFORMATION
  Report Type: 
  Country: None (occurrence: None)
  Receive Date: 20060327
  Receipt Date: 20060317
  Transmission Date: 20060701
  Serious: No
  Sender: FDA-Public Use
  Company Number: 2006AP01382

PATIENT
  Age: 79 Year
  Sex: Male

DRUGS (1)
  1. SEROQUEL [Suspect]
     Dosage: 12.5-18.75 MG
     Route: 048
     Dates: start: 20041118, end: 20051122

REACTIONS (1)
  - EOSINOPHIL COUNT INCREASED [None]
